FAERS Safety Report 5391891-9 (Version None)
Quarter: 2007Q3

REPORT INFORMATION
  Report Type: 
  Country: None (occurrence: None)
  Receive Date: 20070718
  Receipt Date: 20070705
  Transmission Date: 20080115
  Serious: Yes (Other)
  Sender: FDA-Public Use
  Company Number: AE-707-230

PATIENT
  Age: 11 Year
  Sex: Male

DRUGS (5)
  1. LIDODERM [Suspect]
     Indication: CONCUSSION
     Dosage: 1 PATCH
     Dates: start: 20070626, end: 20070627
  2. LIDODERM [Suspect]
     Indication: PAIN
     Dosage: 1 PATCH
     Dates: start: 20070626, end: 20070627
  3. PCA [Concomitant]
  4. TRIDIL [Concomitant]
  5. NAPROXEN [Concomitant]

REACTIONS (1)
  - INTRACRANIAL PRESSURE INCREASED [None]
